FAERS Safety Report 9026246 (Version 1)
Quarter: 2013Q1

REPORT INFORMATION
  Report Type: Spontaneous
  Country: DE (occurrence: None)
  Receive Date: 20130104
  Receipt Date: 20130104
  Transmission Date: 20140127
  Serious: Yes (Other)
  Sender: FDA-Public Use
  Company Number: ACO_33629_2012

PATIENT
  Age: 38 Year
  Sex: Female

DRUGS (9)
  1. FAMPYRA (DALFAMPRIDINE) TABLET, 10MG [Suspect]
     Indication: MULTIPLE SCLEROSIS
     Route: 048
     Dates: start: 2011
  2. TYSABRI (NATALIZUMAB) [Concomitant]
  3. ZENTROPIL (PHENYTOIN) [Concomitant]
  4. AMLODIPINE (AMLODIPINE BESILATE) [Concomitant]
  5. CITALOPRAM [Concomitant]
  6. BACLOFEN (BACLOFEN) (BACLOFEN) [Concomitant]
  7. URBASON (METHYLPREDNISOLONE ACETATE) [Concomitant]
  8. PANTOZOL (PANTOPRAZOLE SODIUM SESQUIHYDRATE) [Concomitant]
  9. RAMIPRIL (RAMIPRIL) [Concomitant]

REACTIONS (3)
  - Off label use [None]
  - Epilepsy [None]
  - Dizziness [None]
